FAERS Safety Report 14388423 (Version 2)
Quarter: 2018Q3

REPORT INFORMATION
  Report Type: Spontaneous
  Country: US (occurrence: US)
  Receive Date: 20180115
  Receipt Date: 20180706
  Transmission Date: 20181010
  Serious: Yes (Other)
  Sender: FDA-Public Use
  Company Number: US-SA-2017SA204422

PATIENT
  Age: 48 Year
  Sex: Female
  Weight: 54.43 kg

DRUGS (25)
  1. NELFINAVIR MESILATE [Concomitant]
     Active Substance: NELFINAVIR MESYLATE
     Dosage: UNK UNK,UNK
     Route: 065
     Dates: start: 2008
  2. DEXAMETHASONE. [Concomitant]
     Active Substance: DEXAMETHASONE
     Dosage: UNK UNK,UNK
     Route: 065
     Dates: start: 2012
  3. COBICISTAT [Concomitant]
     Active Substance: COBICISTAT
     Dosage: UNK UNK,UNK
     Route: 065
     Dates: start: 2008
  4. TAXOTERE [Suspect]
     Active Substance: DOCETAXEL
     Indication: BREAST CANCER
     Dosage: 90.6 MG,Q3W
     Route: 051
     Dates: start: 20151210, end: 20151210
  5. TAXOTERE [Suspect]
     Active Substance: DOCETAXEL
     Dosage: 53.6 MG,Q3W
     Route: 051
     Dates: start: 20160120, end: 20160120
  6. HYDROCHLOROTHIAZIDE. [Concomitant]
     Active Substance: HYDROCHLOROTHIAZIDE
  7. ONDANSETRON [Concomitant]
     Active Substance: ONDANSETRON
     Dosage: UNK UNK,UNK
     Route: 065
     Dates: start: 2012
  8. DIPHENHYDRAMINE. [Concomitant]
     Active Substance: DIPHENHYDRAMINE
     Dosage: UNK UNK,UNK
     Route: 065
  9. TIVICAY [Concomitant]
     Active Substance: DOLUTEGRAVIR SODIUM
     Dosage: UNK UNK,UNK
     Route: 065
     Dates: start: 2008
  10. PREDNISONE. [Concomitant]
     Active Substance: PREDNISONE
     Dosage: UNK UNK,UNK
     Route: 065
  11. DARUNAVIR [Concomitant]
     Active Substance: DARUNAVIR
  12. ABACAVIR SULFATE. [Concomitant]
     Active Substance: ABACAVIR SULFATE
     Dosage: UNK UNK,UNK
     Route: 065
     Dates: start: 2008
  13. PROCHLORPERAZINE. [Concomitant]
     Active Substance: PROCHLORPERAZINE
     Dosage: UNK UNK,UNK
     Route: 065
     Dates: start: 2012
  14. PREZISTA [Concomitant]
     Active Substance: DARUNAVIR ETHANOLATE
     Dosage: UNK UNK,UNK
     Route: 065
     Dates: start: 2008
  15. NEOSAR [Concomitant]
     Active Substance: CYCLOPHOSPHAMIDE
  16. NEUPOGEN [Concomitant]
     Active Substance: FILGRASTIM
     Dosage: UNK UNK,UNK
     Route: 065
     Dates: start: 2012
  17. DOLUTEGRAVIR [Concomitant]
     Active Substance: DOLUTEGRAVIR
  18. EMTRICITABINE [Concomitant]
     Active Substance: EMTRICITABINE
  19. LOSARTAN. [Concomitant]
     Active Substance: LOSARTAN
  20. FLUCONAZOLE. [Concomitant]
     Active Substance: FLUCONAZOLE
     Dosage: UNK UNK,UNK
     Route: 065
     Dates: start: 2012
  21. NYSTATIN. [Concomitant]
     Active Substance: NYSTATIN
     Dosage: UNK UNK,UNK
     Route: 065
     Dates: start: 2012
  22. NORVIR [Concomitant]
     Active Substance: RITONAVIR
     Dosage: UNK UNK,UNK
     Route: 065
     Dates: start: 2008
  23. RITONAVIR. [Concomitant]
     Active Substance: RITONAVIR
  24. MICROGESTIN [Concomitant]
     Active Substance: ETHINYL ESTRADIOL\NORETHINDRONE ACETATE
     Dosage: UNK UNK,UNK
     Route: 065
     Dates: start: 2012
  25. TRUVADA [Concomitant]
     Active Substance: EMTRICITABINE\TENOFOVIR DISOPROXIL FUMARATE
     Dosage: UNK UNK,UNK
     Route: 065
     Dates: start: 2008

REACTIONS (2)
  - Psychological trauma [Unknown]
  - Alopecia [Recovering/Resolving]

NARRATIVE: CASE EVENT DATE: 201607
